FAERS Safety Report 20724239 (Version 1)
Quarter: 2022Q2

REPORT INFORMATION
  Report Type: Report from Study
  Country: US (occurrence: US)
  Receive Date: 20220419
  Receipt Date: 20220419
  Transmission Date: 20220720
  Serious: Yes (Other)
  Sender: FDA-Public Use
  Company Number: US-ALLERGAN-2212387US

PATIENT
  Sex: Male

DRUGS (1)
  1. ATOGEPANT [Suspect]
     Active Substance: ATOGEPANT
     Indication: Cluster headache

REACTIONS (3)
  - Cerebrovascular accident [Unknown]
  - Shoulder operation [Unknown]
  - Drug ineffective [Unknown]
